FAERS Safety Report 7849645-7 (Version None)
Quarter: 2011Q4

REPORT INFORMATION
  Report Type: 
  Country: None (occurrence: None)
  Receive Date: 20111024
  Receipt Date: 20111024
  Transmission Date: 20120403
  Serious: Yes (Other)
  Sender: FDA-Public Use
  Company Number: AUR-APL-2011-04949

PATIENT
  Age: 34 Year
  Sex: Male

DRUGS (1)
  1. CETIRIZINE [Suspect]
     Indication: SEASONAL ALLERGY

REACTIONS (3)
  - DYSPNOEA [None]
  - COUGH [None]
  - FATIGUE [None]
